FAERS Safety Report 12537228 (Version 1)
Quarter: 2016Q3

REPORT INFORMATION
  Report Type: Spontaneous
  Country: JP (occurrence: JP)
  Receive Date: 20160707
  Receipt Date: 20160707
  Transmission Date: 20161109
  Serious: Yes (Hospitalization, Other)
  Sender: FDA-Public Use
  Company Number: JP-WATSON-2016-14185

PATIENT
  Age: 61 Year
  Sex: Female

DRUGS (1)
  1. MINOCYCLINE [Suspect]
     Active Substance: MINOCYCLINE\MINOCYCLINE HYDROCHLORIDE
     Indication: MYCOBACTERIUM ABSCESSUS INFECTION
     Dosage: 100 MG, BID
     Route: 065

REACTIONS (5)
  - Tooth discolouration [Recovering/Resolving]
  - Gingival discolouration [Recovering/Resolving]
  - Mucosal discolouration [Recovering/Resolving]
  - Nail discolouration [Recovering/Resolving]
  - Skin discolouration [Recovering/Resolving]
